FAERS Safety Report 4478193-X (Version None)
Quarter: 2004Q4

REPORT INFORMATION
  Report Type: 
  Country: None (occurrence: None)
  Receive Date: 20041018
  Receipt Date: 20041018
  Transmission Date: 20050328
  Serious: Yes (Other)
  Sender: FDA-Public Use
  Company Number: None

PATIENT
  Age: 84 Year
  Sex: Male

DRUGS (5)
  1. LISINOPRIL [Suspect]
     Indication: HYPERTENSION
     Dosage: 5 MG QD
  2. ATENOLOL [Concomitant]
  3. AMLODIPINE [Concomitant]
  4. NITROGLYCERIN [Concomitant]
  5. ASPIRIN [Concomitant]

REACTIONS (1)
  - ANGIONEUROTIC OEDEMA [None]
